FAERS Safety Report 6083128-2 (Version None)
Quarter: 2009Q1

REPORT INFORMATION
  Report Type: 
  Country: None (occurrence: None)
  Receive Date: 20090219
  Receipt Date: 20090213
  Transmission Date: 20090719
  Serious: Yes (Hospitalization, Other)
  Sender: FDA-Public Use
  Company Number: JP-SP-2009-00220

PATIENT
  Age: 82 Year
  Sex: Male

DRUGS (2)
  1. IMMUCYST [Suspect]
     Indication: BLADDER CANCER
     Route: 043
     Dates: start: 20080623, end: 20080707
  2. ROXATIDINE ACETATE HCL [Concomitant]

REACTIONS (3)
  - EPIDIDYMITIS TUBERCULOUS [None]
  - ORCHIDECTOMY [None]
  - TESTICULAR SWELLING [None]
